FAERS Safety Report 8930417 (Version 2)
Quarter: 2012Q4

REPORT INFORMATION
  Report Type: 
  Country: US (occurrence: US)
  Receive Date: 20121128
  Receipt Date: 20121129
  Transmission Date: 20130627
  Serious: No
  Sender: FDA-Public Use
  Company Number: US-BAYER-2012-119257

PATIENT
  Age: 56 Year
  Sex: Female
  Weight: 122.45 kg

DRUGS (7)
  1. BETASERON [Suspect]
     Indication: RELAPSING-REMITTING MULTIPLE SCLEROSIS
     Dosage: 0.3 mg, QOD
     Route: 058
     Dates: start: 2009, end: 20121111
  2. CRESTOR [Concomitant]
  3. ATENOLOL [Concomitant]
  4. VITAMIN D3 [Concomitant]
  5. ASPIRIN [Concomitant]
  6. LORAZEPAM [Concomitant]
  7. COPAXONE [Concomitant]

REACTIONS (4)
  - Heart rate increased [None]
  - Dyspnoea [None]
  - Tachycardia [Not Recovered/Not Resolved]
  - Drug hypersensitivity [None]
